FAERS Safety Report 4544855-9 (Version None)
Quarter: 2005Q1

REPORT INFORMATION
  Report Type: 
  Country: None (occurrence: None)
  Receive Date: 20050105
  Receipt Date: 20041115
  Transmission Date: 20050727
  Serious: Yes (Hospitalization)
  Sender: FDA-Public Use
  Company Number: SE-MERCK-0411SWE00028

PATIENT
  Age: 63 Year
  Sex: Female

DRUGS (5)
  1. VIOXX [Suspect]
     Indication: RHEUMATOID ARTHRITIS
     Route: 048
     Dates: start: 19991101, end: 19991218
  2. METHOTREXATE [Suspect]
     Indication: RHEUMATOID ARTHRITIS
     Route: 048
     Dates: start: 19920101
  3. ACETAMINOPHEN [Concomitant]
     Route: 065
  4. PREDNISOLONE [Concomitant]
     Route: 065
  5. PROPOXYPHENE NAPSYLATE [Concomitant]
     Route: 065

REACTIONS (7)
  - ATRIAL FIBRILLATION [None]
  - CARDIAC FAILURE [None]
  - DIZZINESS [None]
  - FALL [None]
  - FATIGUE [None]
  - HIP FRACTURE [None]
  - PANCYTOPENIA [None]
